FAERS Safety Report 5619717-6 (Version None)
Quarter: 2008Q1

REPORT INFORMATION
  Report Type: 
  Country: None (occurrence: None)
  Receive Date: 20080208
  Receipt Date: 20071119
  Transmission Date: 20080703
  Serious: No
  Sender: FDA-Public Use
  Company Number: A0691232A

PATIENT
  Age: 46 Year
  Sex: Female
  Weight: 63.6 kg

DRUGS (5)
  1. ALTABAX [Suspect]
     Indication: INFECTION
     Route: 061
     Dates: start: 20070511, end: 20070920
  2. BACTRIM DS [Suspect]
     Indication: INFECTION
     Dosage: 1TAB PER DAY
     Route: 048
     Dates: start: 20070720, end: 20070920
  3. FISH OIL [Suspect]
     Indication: ECZEMA
     Dosage: 1CAP PER DAY
     Route: 048
     Dates: start: 20070720, end: 20070920
  4. ZYRTEC [Concomitant]
     Dosage: 10MG AT NIGHT
  5. ALBUTEROL [Concomitant]

REACTIONS (2)
  - ECZEMA [None]
  - RASH PAPULAR [None]
